FAERS Safety Report 5033837-9 (Version None)
Quarter: 2006Q2

REPORT INFORMATION
  Report Type: 
  Country: None (occurrence: None)
  Receive Date: 20060623
  Receipt Date: 20060609
  Transmission Date: 20061013
  Serious: Yes (Hospitalization)
  Sender: FDA-Public Use
  Company Number: US-AMGEN-STX182556

PATIENT
  Sex: Male

DRUGS (1)
  1. ENBREL [Suspect]
     Indication: PSORIASIS
     Route: 065
     Dates: start: 20060601

REACTIONS (6)
  - ASTHENIA [None]
  - BLISTER [None]
  - BODY TEMPERATURE INCREASED [None]
  - CHILLS [None]
  - DYSPNOEA [None]
  - SWELLING [None]
